FAERS Safety Report 22267936 (Version 1)
Quarter: 2023Q2

REPORT INFORMATION
  Report Type: Report from Study
  Country: US (occurrence: US)
  Receive Date: 20230430
  Receipt Date: 20230430
  Transmission Date: 20230721
  Serious: No
  Sender: FDA-Public Use
  Company Number: US-002147023-NVSC2023US095459

PATIENT
  Age: 65 Year
  Sex: Female
  Weight: 77.11 kg

DRUGS (1)
  1. ENTRESTO [Suspect]
     Active Substance: SACUBITRIL\VALSARTAN
     Indication: Cardiac failure chronic
     Dosage: 1 DOSAGE FORM, BID
     Route: 048
     Dates: start: 20171001

REACTIONS (2)
  - Nervousness [Unknown]
  - Dizziness [Unknown]

NARRATIVE: CASE EVENT DATE: 20230419
